FAERS Safety Report 13285928 (Version 1)
Quarter: 2017Q1

REPORT INFORMATION
  Report Type: Report from Study
  Country: None (occurrence: GT)
  Receive Date: 20170301
  Receipt Date: 20170301
  Transmission Date: 20170428
  Serious: Yes (Other)
  Sender: FDA-Public Use
  Company Number: GT-ABBVIE-17P-069-1884962-00

PATIENT
  Age: 27 Year
  Sex: Female

DRUGS (3)
  1. ERYTHROPOIETIN [Concomitant]
     Active Substance: ERYTHROPOIETIN
     Indication: RED BLOOD CELL ABNORMALITY
     Route: 042
  2. ZEMPLAR [Suspect]
     Active Substance: PARICALCITOL
     Indication: HYPERPARATHYROIDISM SECONDARY
     Route: 042
     Dates: start: 20160628
  3. CALCIUM [Concomitant]
     Active Substance: CALCIUM
     Indication: PRODUCT USED FOR UNKNOWN INDICATION
     Route: 042

REACTIONS (4)
  - Haemoglobin decreased [Recovering/Resolving]
  - Pain [Recovering/Resolving]
  - Renal failure [Recovering/Resolving]
  - Urinary tract infection [Recovering/Resolving]

NARRATIVE: CASE EVENT DATE: 201702
